FAERS Safety Report 11986245 (Version 2)
Quarter: 2016Q1

REPORT INFORMATION
  Report Type: Report from Study
  Country: US (occurrence: US)
  Receive Date: 20160202
  Receipt Date: 20160209
  Transmission Date: 20160526
  Serious: Yes (Other)
  Sender: FDA-Public Use
  Company Number: US-ROCHE-1633552

PATIENT
  Age: 63 Year
  Sex: Female
  Weight: 71.73 kg

DRUGS (9)
  1. ERIVEDGE [Suspect]
     Active Substance: VISMODEGIB
     Route: 048
     Dates: start: 20150826
  2. CYMBALTA [Concomitant]
     Active Substance: DULOXETINE HYDROCHLORIDE
  3. ERIVEDGE [Suspect]
     Active Substance: VISMODEGIB
     Indication: BASAL CELL CARCINOMA
     Route: 048
     Dates: start: 20150806
  4. RITUXAN [Suspect]
     Active Substance: RITUXIMAB
     Indication: LYMPHOMA
     Route: 042
     Dates: start: 201403
  5. CARAC (UNITED STATES) [Concomitant]
     Dosage: 0.5 %
     Route: 065
  6. LIOTHYRONINE [Concomitant]
     Active Substance: LIOTHYRONINE
     Indication: THYROID THERAPY
     Route: 048
     Dates: start: 2011
  7. MUPIROCIN. [Concomitant]
     Active Substance: MUPIROCIN
     Dosage: 2 % OINTMENT
     Route: 065
  8. ABILIFY [Concomitant]
     Active Substance: ARIPIPRAZOLE
  9. TRAZODONE HYDROCHLORIDE. [Concomitant]
     Active Substance: TRAZODONE HYDROCHLORIDE

REACTIONS (19)
  - Pain of skin [Not Recovered/Not Resolved]
  - Dizziness [Recovered/Resolved]
  - Nausea [Not Recovered/Not Resolved]
  - Swelling [Not Recovered/Not Resolved]
  - Asthenia [Unknown]
  - Asthenia [Recovered/Resolved]
  - Pruritus [Not Recovered/Not Resolved]
  - Fatigue [Unknown]
  - Malaise [Recovered/Resolved]
  - Skin exfoliation [Not Recovered/Not Resolved]
  - Urticaria [Unknown]
  - Oral pruritus [Unknown]
  - Squamous cell carcinoma [Recovered/Resolved]
  - White blood cell count decreased [Unknown]
  - Hepatic enzyme increased [Unknown]
  - Dysstasia [Recovered/Resolved]
  - Erythema [Not Recovered/Not Resolved]
  - Dizziness [Unknown]
  - White blood cell count decreased [Recovered/Resolved]

NARRATIVE: CASE EVENT DATE: 201509
